FAERS Safety Report 6621915-X (Version None)
Quarter: 2010Q1

REPORT INFORMATION
  Report Type: 
  Country: None (occurrence: None)
  Receive Date: 20100303
  Receipt Date: 20100217
  Transmission Date: 20100710
  Serious: Yes (Other)
  Sender: FDA-Public Use
  Company Number: C-09-0255-W

PATIENT
  Age: 67 Year
  Sex: Female
  Weight: 23.6551 kg

DRUGS (2)
  1. RANITIDINE HCL [Suspect]
     Indication: GASTROOESOPHAGEAL REFLUX DISEASE
     Dosage: 150MG, SINGLE, 047
     Dates: start: 20091025
  2. ATROVENT [Concomitant]

REACTIONS (2)
  - BLOOD PRESSURE SYSTOLIC INCREASED [None]
  - HYPERSENSITIVITY [None]
